FAERS Safety Report 8402488-8 (Version None)
Quarter: 2012Q2

REPORT INFORMATION
  Report Type: 
  Country: None (occurrence: None)
  Receive Date: 20120601
  Receipt Date: 20120521
  Transmission Date: 20120825
  Serious: Yes (Other)
  Sender: FDA-Public Use
  Company Number: US-BAYER-2012-050937

PATIENT
  Age: 17 Year
  Sex: Female
  Weight: 57 kg

DRUGS (1)
  1. ALKA-SELTZER PLUS ALLERGY TABLETS [Suspect]
     Dosage: UNK
     Route: 048
     Dates: start: 20120521

REACTIONS (7)
  - PANIC ATTACK [None]
  - MOUTH BREATHING [None]
  - ANXIETY [None]
  - COUGH [None]
  - HEART RATE INCREASED [None]
  - CONVULSION [None]
  - DYSPNOEA [None]
